FAERS Safety Report 4629534-1 (Version None)
Quarter: 2005Q2

REPORT INFORMATION
  Report Type: 
  Country: None (occurrence: None)
  Receive Date: 20050405
  Receipt Date: 20050329
  Transmission Date: 20051028
  Serious: Yes (Other)
  Sender: FDA-Public Use
  Company Number: 200511300BCC

PATIENT
  Age: 45 Year
  Sex: Male
  Weight: 86.1834 kg

DRUGS (1)
  1. LEMON-LIME ALKA-SELTZER [Suspect]
     Indication: NASOPHARYNGITIS
     Dosage: 650 MG, ORAL
     Route: 048
     Dates: start: 20050328

REACTIONS (1)
  - BLOOD PRESSURE INCREASED [None]
